FAERS Safety Report 8336059-9 (Version None)
Quarter: 2012Q2

REPORT INFORMATION
  Report Type: 
  Country: None (occurrence: None)
  Receive Date: 20120501
  Receipt Date: 20120501
  Transmission Date: 20120825
  Serious: Yes (Hospitalization)
  Sender: FDA-Public Use
  Company Number: None

PATIENT
  Age: 65 Year
  Sex: Female
  Weight: 122.5 kg

DRUGS (14)
  1. POTASSIUM CHLORIDE [Concomitant]
  2. VENTOLIN [Concomitant]
  3. METOPROLOL TARTRATE [Suspect]
     Indication: BRADYCARDIA
     Dosage: 3MG ONCE IV  RECENT
     Route: 042
  4. SYNTHROID [Concomitant]
  5. M.V.I. [Concomitant]
  6. VITAMIN D [Concomitant]
  7. LASIX [Concomitant]
  8. OMEPRAZOLE [Concomitant]
  9. ZYRTEC [Concomitant]
  10. IRON [Concomitant]
  11. LOVASTATIN [Concomitant]
  12. CYMBALTA [Concomitant]
  13. PREMARIN [Concomitant]
  14. ASPIRIN [Concomitant]

REACTIONS (2)
  - BRADYCARDIA [None]
  - ATRIAL FIBRILLATION [None]
